FAERS Safety Report 17570292 (Version 1)
Quarter: 2020Q1

REPORT INFORMATION
  Report Type: Spontaneous
  Country: US (occurrence: US)
  Receive Date: 20200323
  Receipt Date: 20200323
  Transmission Date: 20200409
  Serious: No
  Sender: FDA-Public Use
  Company Number: US-009507513-2003USA007778

PATIENT
  Age: 3 Year
  Sex: Female

DRUGS (3)
  1. PROVENTIL [Suspect]
     Active Substance: ALBUTEROL
     Dosage: UNK
     Dates: start: 20200318
  2. PROVENTIL [Suspect]
     Active Substance: ALBUTEROL
     Indication: ASTHMA
     Dosage: 1 PUFF EVERY 4 HOURS
     Dates: end: 20200318
  3. FLOVENT [Concomitant]
     Active Substance: FLUTICASONE PROPIONATE
     Indication: ASTHMA
     Dosage: UNK

REACTIONS (4)
  - Product quality issue [Unknown]
  - Product administered to patient of inappropriate age [Unknown]
  - Poor quality device used [Unknown]
  - Product dose omission [Unknown]

NARRATIVE: CASE EVENT DATE: 20200309
